FAERS Safety Report 18223235 (Version 4)
Quarter: 2021Q3

REPORT INFORMATION
  Report Type: Spontaneous
  Country: US (occurrence: US)
  Receive Date: 20200902
  Receipt Date: 20210816
  Transmission Date: 20211014
  Serious: Yes (Disabling, Other)
  Sender: FDA-Public Use
  Company Number: US-PURDUE-USA-2020-0151891

PATIENT
  Age: 38 Year
  Sex: Male

DRUGS (44)
  1. MORPHINE SULFATE (SIMILAR TO NDA 19?516) [Suspect]
     Active Substance: MORPHINE SULFATE
     Indication: ROAD TRAFFIC ACCIDENT
     Dosage: UNKNOWN, DAILY
     Route: 048
     Dates: start: 20041011
  2. OXYCODONE HCL TABLETS (RHODES 91?490) [Suspect]
     Active Substance: OXYCODONE HYDROCHLORIDE
     Indication: MULTIPLE INJURIES
  3. BUPRENORPHINE TRANSDERMAL PATCH (SIMILAR TO NDA 21?306) [Suspect]
     Active Substance: BUPRENORPHINE
     Indication: MULTIPLE INJURIES
  4. OXY IR [Suspect]
     Active Substance: OXYCODONE HYDROCHLORIDE
     Indication: PAIN MANAGEMENT
     Dosage: UNKNOWN
     Route: 065
  5. OXY IR [Suspect]
     Active Substance: OXYCODONE HYDROCHLORIDE
     Indication: MULTIPLE INJURIES
  6. OXYFAST [Suspect]
     Active Substance: OXYCODONE
     Indication: ROAD TRAFFIC ACCIDENT
  7. OXYCONTIN [Suspect]
     Active Substance: OXYCODONE HYDROCHLORIDE
     Indication: MULTIPLE INJURIES
  8. TRAMADOL CR TABLETS (RHODES 21?745) [Suspect]
     Active Substance: TRAMADOL
     Indication: ROAD TRAFFIC ACCIDENT
  9. VICODIN [Suspect]
     Active Substance: ACETAMINOPHEN\HYDROCODONE BITARTRATE
     Indication: ROAD TRAFFIC ACCIDENT
     Dosage: 500 MG, UNK
     Route: 048
     Dates: start: 20041011
  10. ULTRAM [Suspect]
     Active Substance: TRAMADOL HYDROCHLORIDE
     Indication: PAIN MANAGEMENT
     Dosage: UNKNOWN
     Route: 065
  11. DILAUDID [Suspect]
     Active Substance: HYDROMORPHONE HYDROCHLORIDE
     Indication: ROAD TRAFFIC ACCIDENT
  12. MS CONTIN [Suspect]
     Active Substance: MORPHINE SULFATE
     Indication: MULTIPLE INJURIES
  13. OXYCODONE HCL TABLETS (RHODES 91?490) [Suspect]
     Active Substance: OXYCODONE HYDROCHLORIDE
     Indication: PAIN MANAGEMENT
     Dosage: UNKNOWN
     Route: 048
  14. HYDROMORPHONE HCL (SIMILAR TO 19?892) [Suspect]
     Active Substance: HYDROMORPHONE HYDROCHLORIDE
     Indication: PAIN MANAGEMENT
     Dosage: UNKNOWN
     Route: 048
  15. HYDROMORPHONE HCL (SIMILAR TO 19?892) [Suspect]
     Active Substance: HYDROMORPHONE HYDROCHLORIDE
     Indication: MULTIPLE INJURIES
  16. OXYFAST [Suspect]
     Active Substance: OXYCODONE
     Indication: PAIN MANAGEMENT
     Dosage: UNKNOWN
     Route: 048
  17. PERCOCET                           /00446701/ [Suspect]
     Active Substance: ACETAMINOPHEN\OXYCODONE HYDROCHLORIDE\OXYCODONE TEREPHTHALATE
     Indication: MULTIPLE INJURIES
  18. MORPHINE SULFATE (SIMILAR TO NDA 19?516) [Suspect]
     Active Substance: MORPHINE SULFATE
     Indication: MULTIPLE INJURIES
  19. OXYCODONE HCL CR TABLETS (SIMILAR TO NDA 22?272) [Suspect]
     Active Substance: OXYCODONE HYDROCHLORIDE
     Indication: PAIN MANAGEMENT
     Dosage: UNKNOWN
     Route: 048
  20. OXYCODONE HCL CR TABLETS (SIMILAR TO NDA 22?272) [Suspect]
     Active Substance: OXYCODONE HYDROCHLORIDE
     Indication: ROAD TRAFFIC ACCIDENT
  21. OXYCODONE HCL TABLETS (RHODES 91?490) [Suspect]
     Active Substance: OXYCODONE HYDROCHLORIDE
     Indication: ROAD TRAFFIC ACCIDENT
  22. BUPRENORPHINE TRANSDERMAL PATCH (SIMILAR TO NDA 21?306) [Suspect]
     Active Substance: BUPRENORPHINE
     Indication: ROAD TRAFFIC ACCIDENT
  23. TRAMADOL CR TABLETS (RHODES 21?745) [Suspect]
     Active Substance: TRAMADOL
     Indication: PAIN MANAGEMENT
     Dosage: UNKNOWN
     Route: 048
  24. DILAUDID [Suspect]
     Active Substance: HYDROMORPHONE HYDROCHLORIDE
     Indication: MULTIPLE INJURIES
  25. PERCOCET                           /00446701/ [Suspect]
     Active Substance: ACETAMINOPHEN\OXYCODONE HYDROCHLORIDE\OXYCODONE TEREPHTHALATE
     Indication: ROAD TRAFFIC ACCIDENT
     Dosage: 750 MG, 4?5 TABLETS DAILY
     Route: 048
     Dates: start: 20041011
  26. DILAUDID [Suspect]
     Active Substance: HYDROMORPHONE HYDROCHLORIDE
     Indication: PAIN MANAGEMENT
     Dosage: UNKNOWN
     Route: 048
  27. MS CONTIN [Suspect]
     Active Substance: MORPHINE SULFATE
     Indication: ROAD TRAFFIC ACCIDENT
  28. OXYCODONE/ ACETAMINOPHEN TABLETS [Suspect]
     Active Substance: ACETAMINOPHEN\OXYCODONE HYDROCHLORIDE
     Indication: PAIN MANAGEMENT
     Dosage: UNKNOWN
     Route: 048
  29. HYDROCODONE BITARTRATE AND ACETAMINOPHEN [Suspect]
     Active Substance: ACETAMINOPHEN\HYDROCODONE BITARTRATE
     Indication: MULTIPLE INJURIES
  30. HYDROMORPHONE HCL (SIMILAR TO 19?892) [Suspect]
     Active Substance: HYDROMORPHONE HYDROCHLORIDE
     Indication: ROAD TRAFFIC ACCIDENT
  31. TRAMADOL CR TABLETS (RHODES 21?745) [Suspect]
     Active Substance: TRAMADOL
     Indication: MULTIPLE INJURIES
  32. OXY IR [Suspect]
     Active Substance: OXYCODONE HYDROCHLORIDE
     Indication: ROAD TRAFFIC ACCIDENT
  33. OXYFAST [Suspect]
     Active Substance: OXYCODONE
     Indication: MULTIPLE INJURIES
  34. ULTRAM [Suspect]
     Active Substance: TRAMADOL HYDROCHLORIDE
     Indication: MULTIPLE INJURIES
  35. MS CONTIN [Suspect]
     Active Substance: MORPHINE SULFATE
     Indication: PAIN MANAGEMENT
     Dosage: UNKNOWN
     Route: 048
  36. OXYCODONE HCL CR TABLETS (SIMILAR TO NDA 22?272) [Suspect]
     Active Substance: OXYCODONE HYDROCHLORIDE
     Indication: MULTIPLE INJURIES
  37. OXYCODONE/ ACETAMINOPHEN TABLETS [Suspect]
     Active Substance: ACETAMINOPHEN\OXYCODONE HYDROCHLORIDE
     Indication: MULTIPLE INJURIES
  38. OXYCODONE/ ACETAMINOPHEN TABLETS [Suspect]
     Active Substance: ACETAMINOPHEN\OXYCODONE HYDROCHLORIDE
     Indication: ROAD TRAFFIC ACCIDENT
  39. HYDROCODONE BITARTRATE AND ACETAMINOPHEN [Suspect]
     Active Substance: ACETAMINOPHEN\HYDROCODONE BITARTRATE
     Indication: PAIN MANAGEMENT
     Dosage: UNKNOWN
     Route: 048
  40. OXYCONTIN [Suspect]
     Active Substance: OXYCODONE HYDROCHLORIDE
     Indication: ROAD TRAFFIC ACCIDENT
     Dosage: UNKNOWN
     Route: 048
  41. BUPRENORPHINE TRANSDERMAL PATCH (SIMILAR TO NDA 21?306) [Suspect]
     Active Substance: BUPRENORPHINE
     Indication: PAIN MANAGEMENT
     Dosage: UNKNOWN
     Route: 062
  42. HYDROCODONE BITARTRATE AND ACETAMINOPHEN [Suspect]
     Active Substance: ACETAMINOPHEN\HYDROCODONE BITARTRATE
     Indication: ROAD TRAFFIC ACCIDENT
  43. VICODIN [Suspect]
     Active Substance: ACETAMINOPHEN\HYDROCODONE BITARTRATE
     Indication: MULTIPLE INJURIES
  44. ULTRAM [Suspect]
     Active Substance: TRAMADOL HYDROCHLORIDE
     Indication: ROAD TRAFFIC ACCIDENT

REACTIONS (14)
  - Road traffic accident [Unknown]
  - Overdose [Unknown]
  - Disability [Unknown]
  - Developmental delay [Unknown]
  - Loss of consciousness [Unknown]
  - Pain [Unknown]
  - Memory impairment [Unknown]
  - Brain injury [Unknown]
  - Learning disability [Unknown]
  - Coma [Unknown]
  - Multiple fractures [Unknown]
  - Pneumothorax [Unknown]
  - Drug dependence [Unknown]
  - Drug withdrawal syndrome [Unknown]

NARRATIVE: CASE EVENT DATE: 20041013
